FAERS Safety Report 7476835-8 (Version None)
Quarter: 2011Q2

REPORT INFORMATION
  Report Type: 
  Country: None (occurrence: None)
  Receive Date: 20110512
  Receipt Date: 20110503
  Transmission Date: 20111010
  Serious: Yes (Other)
  Sender: FDA-Public Use
  Company Number: PHHY2011US38005

PATIENT
  Sex: Female

DRUGS (4)
  1. LASIX [Concomitant]
  2. ASPIRIN [Concomitant]
     Dosage: UNK
  3. EXELON [Suspect]
     Dosage: 4.6 MG, ONE PATCH DAILY
     Route: 062
  4. ADALHE [Concomitant]

REACTIONS (2)
  - COMA [None]
  - NAUSEA [None]
